FAERS Safety Report 8138467-8 (Version None)
Quarter: 2012Q1

REPORT INFORMATION
  Report Type: 
  Country: None (occurrence: None)
  Receive Date: 20120215
  Receipt Date: 20120208
  Transmission Date: 20120608
  Serious: Yes (Hospitalization)
  Sender: FDA-Public Use
  Company Number: US-JNJFOC-20120207257

PATIENT
  Age: 92 Year
  Sex: Female
  Weight: 54.89 kg

DRUGS (5)
  1. MINOXIDIL [Suspect]
     Indication: PRODUCT USED FOR UNKNOWN INDICATION
     Dosage: NICKEL SIZE
     Route: 061
  2. VITAMIN D [Concomitant]
     Indication: ROUTINE HEALTH MAINTENANCE
     Route: 065
  3. ASCORBIC ACID [Concomitant]
     Indication: ROUTINE HEALTH MAINTENANCE
     Route: 065
  4. MINOXIDIL [Suspect]
     Dosage: NICKEL SIZE
     Route: 061
     Dates: start: 20110101
  5. MULTI-VITAMIN [Concomitant]
     Indication: ROUTINE HEALTH MAINTENANCE
     Route: 065

REACTIONS (4)
  - HERPES ZOSTER [None]
  - WRONG DRUG ADMINISTERED [None]
  - DRUG INEFFECTIVE [None]
  - ALOPECIA [None]
